FAERS Safety Report 4513375-X (Version None)
Quarter: 2004Q4

REPORT INFORMATION
  Report Type: 
  Country: None (occurrence: None)
  Receive Date: 20041130
  Receipt Date: 20040830
  Transmission Date: 20050328
  Serious: No
  Sender: FDA-Public Use
  Company Number: US-BRISTOL-MYERS SQUIBB COMPANY-12687745

PATIENT
  Sex: Female
  Weight: 47 kg

DRUGS (10)
  1. ERBITUX [Suspect]
     Indication: COLON CANCER METASTATIC
     Route: 042
     Dates: start: 20040615, end: 20040615
  2. DECADRON [Concomitant]
     Indication: PREMEDICATION
     Dosage: TAKEN AT HOME, 6 AND 12 PRIOR TO CETUXIMAB
     Route: 048
     Dates: start: 20040615, end: 20040615
  3. BENADRYL [Concomitant]
     Indication: PREMEDICATION
     Route: 042
     Dates: start: 20040615, end: 20040615
  4. COUMADIN [Concomitant]
  5. ZESTRIL [Concomitant]
  6. MIRALAX [Concomitant]
  7. CLARITIN [Concomitant]
  8. KYTRIL [Concomitant]
  9. LASIX [Concomitant]
  10. OXYCONTIN [Concomitant]

REACTIONS (4)
  - BLISTER [None]
  - DYSPNOEA [None]
  - ERYTHEMA [None]
  - RASH ERYTHEMATOUS [None]
